FAERS Safety Report 20178019 (Version 2)
Quarter: 2021Q4

REPORT INFORMATION
  Report Type: Spontaneous
  Country: US (occurrence: US)
  Receive Date: 20211213
  Receipt Date: 20211215
  Transmission Date: 20220303
  Serious: Yes (Other)
  Sender: FDA-Public Use
  Company Number: US-SANOFI-00886033

PATIENT
  Age: 90 Year
  Sex: Female

DRUGS (2)
  1. LANTUS SOLOSTAR [Suspect]
     Active Substance: INSULIN GLARGINE
     Indication: Type 2 diabetes mellitus
     Dosage: 16 IU, QD
     Route: 065
     Dates: start: 2017
  2. GLIPIZIDE [Concomitant]
     Active Substance: GLIPIZIDE
     Dosage: UNK
     Route: 065

REACTIONS (4)
  - Blood glucose increased [Unknown]
  - Device leakage [Unknown]
  - Device operational issue [Unknown]
  - Intentional product misuse [Unknown]
